FAERS Safety Report 10077351 (Version 2)
Quarter: 2014Q2

REPORT INFORMATION
  Report Type: Spontaneous
  Country: US (occurrence: US)
  Receive Date: 20140414
  Receipt Date: 20140414
  Transmission Date: 20141212
  Serious: No
  Sender: FDA-Public Use
  Company Number: US-BANPHARM-20131389

PATIENT
  Age: 50 Year
  Sex: Male
  Weight: 107.05 kg

DRUGS (1)
  1. ALEVE LIQUID GELS 220 MG [Suspect]
     Dosage: 2 DF, ONCE,
     Route: 048

REACTIONS (4)
  - Swelling face [Recovering/Resolving]
  - Urticaria [Recovered/Resolved]
  - Swelling face [Unknown]
  - Urticaria [Recovered/Resolved]
